FAERS Safety Report 11239872 (Version 8)
Quarter: 2016Q4

REPORT INFORMATION
  Report Type: Spontaneous
  Country: US (occurrence: US)
  Receive Date: 20150706
  Receipt Date: 20161010
  Transmission Date: 20170206
  Serious: Yes (Other)
  Sender: FDA-Public Use
  Company Number: US-PFIZER INC-2015218421

PATIENT
  Age: 69 Year
  Sex: Female
  Weight: 82 kg

DRUGS (8)
  1. BISOPROLOL FUMARATE HCTZ [Concomitant]
     Dosage: 1 DF, DAILY; (BISOPROLOL 10 MG / HYDROCHLOROTHIAZIDE 6.25 MG)
     Route: 048
  2. FEMARA [Concomitant]
     Active Substance: LETROZOLE
     Indication: CHEMOTHERAPY
     Dosage: 2.5 MG, DAILY
     Route: 048
     Dates: start: 20150612
  3. ZYRTEC [Suspect]
     Active Substance: CETIRIZINE HYDROCHLORIDE
     Dosage: 5 MG, AS NEEDED
     Route: 048
  4. PRILOSEC [Concomitant]
     Active Substance: OMEPRAZOLE MAGNESIUM
     Indication: DYSPEPSIA
     Dosage: 40 MG, 1X/DAY
     Route: 048
  5. BISOPROLOL FUMARATE HCTZ [Concomitant]
     Indication: HYPERTENSION
     Dosage: BISOPROLOL FUMARATE 10 MG, HYDROCHLOROTHIAZIDE 6.25 MG
  6. IBRANCE [Suspect]
     Active Substance: PALBOCICLIB
     Dosage: 125 MG, CYCLIC
     Dates: start: 20150601
  7. NEXIUM [Concomitant]
     Active Substance: ESOMEPRAZOLE MAGNESIUM
     Dosage: UNK
  8. IBRANCE [Suspect]
     Active Substance: PALBOCICLIB
     Indication: BREAST CANCER
     Dosage: 125 MG, CYCLIC (125 MG ONCE A DAY FOR 21 DAYS AND 7 DAYS OFF)
     Route: 048
     Dates: start: 20150612

REACTIONS (5)
  - Nephrolithiasis [Unknown]
  - Diarrhoea [Recovered/Resolved]
  - Neutropenia [Unknown]
  - Malaise [Recovered/Resolved]
  - Abdominal pain upper [Recovered/Resolved]

NARRATIVE: CASE EVENT DATE: 20150613
